FAERS Safety Report 12849524 (Version 1)
Quarter: 2016Q4

REPORT INFORMATION
  Report Type: Spontaneous
  Country: US (occurrence: US)
  Receive Date: 20161014
  Receipt Date: 20161014
  Transmission Date: 20170207
  Serious: No
  Sender: FDA-Public Use
  Company Number: US-ROCHE-1743090

PATIENT
  Sex: Male

DRUGS (5)
  1. ESBRIET [Suspect]
     Active Substance: PIRFENIDONE
     Indication: IDIOPATHIC PULMONARY FIBROSIS
     Dosage: MAINTE
     Route: 048
     Dates: start: 20160325
  2. ATENOLOL. [Concomitant]
     Active Substance: ATENOLOL
  3. ALBUTEROL SULFATE. [Concomitant]
     Active Substance: ALBUTEROL SULFATE
  4. AMITRIPTYLINE HCL [Concomitant]
     Active Substance: AMITRIPTYLINE
  5. AMLODIPINE BESYLATE. [Concomitant]
     Active Substance: AMLODIPINE BESYLATE

REACTIONS (3)
  - Dizziness [Not Recovered/Not Resolved]
  - Productive cough [Unknown]
  - Erythema [Not Recovered/Not Resolved]
